FAERS Safety Report 11049293 (Version 4)
Quarter: 2015Q3

REPORT INFORMATION
  Report Type: Spontaneous
  Country: US (occurrence: US)
  Receive Date: 20150420
  Receipt Date: 20150715
  Transmission Date: 20151125
  Serious: Yes (Hospitalization, Other)
  Sender: FDA-Public Use
  Company Number: US-PFIZER INC-2015130709

PATIENT
  Age: 58 Year
  Sex: Female
  Weight: 82 kg

DRUGS (21)
  1. ZOCOR [Suspect]
     Active Substance: SIMVASTATIN
     Indication: BLOOD TRIGLYCERIDES ABNORMAL
     Dosage: UNK, 1X/DAY AT NIGHT
     Dates: end: 20150315
  2. LISINOPRIL. [Suspect]
     Active Substance: LISINOPRIL
     Indication: BLOOD PRESSURE INCREASED
     Dosage: 40 MG, 2X/DAY
     Dates: end: 20150315
  3. FISH OIL [Concomitant]
     Active Substance: FISH OIL
     Dosage: 1000 MG, DAILY
  4. SIMVASTATIN. [Concomitant]
     Active Substance: SIMVASTATIN
     Dosage: 40 MG, 1X/DAY AT BED TIME
  5. FUROSEMIDE. [Concomitant]
     Active Substance: FUROSEMIDE
     Dosage: 40 MG, 1X/DAY
  6. LASIX [Suspect]
     Active Substance: FUROSEMIDE
     Indication: ELECTROLYTE IMBALANCE
     Dosage: 40 MG, 1X/DAY
     Dates: end: 20150315
  7. ALDACTONE [Concomitant]
     Active Substance: SPIRONOLACTONE
     Dosage: UNK
     Dates: end: 20150314
  8. OXYCODONE [Concomitant]
     Active Substance: OXYCODONE
     Dosage: 30 MG, 3X/DAY
  9. TRAZONE [Concomitant]
     Dosage: 100 MG, 1X/DAY AT BEDTIME
  10. TRICON [Concomitant]
     Active Substance: ASCORBIC ACID\CYANOCOBALAMIN\FERROUS FUMARATE\FOLIC ACID
     Dosage: 48 MG, 1X/DAY
  11. LYRICA [Suspect]
     Active Substance: PREGABALIN
     Indication: PAIN
     Dosage: UNK
  12. OXYCONTIN [Concomitant]
     Active Substance: OXYCODONE HYDROCHLORIDE
     Dosage: 30 MG, 2X/DAY EVERY 12 HRS
  13. SPIRONOLACTONE. [Concomitant]
     Active Substance: SPIRONOLACTONE
     Dosage: 25 MG, 2X/DAY
  14. ASPIRIN. [Concomitant]
     Active Substance: ASPIRIN
     Dosage: 81 MG, 1X/DAY
  15. VICTOZA [Concomitant]
     Active Substance: LIRAGLUTIDE
     Dosage: 1.2 MG, DAILY
  16. CALCITRIOL. [Concomitant]
     Active Substance: CALCITRIOL
     Dosage: 0.25MG TAB 3 X A WEEK
  17. TRICO [Suspect]
     Active Substance: METRONIDAZOLE
     Dosage: UNK UNK, 1X/DAY AT NIGHT
     Dates: end: 20150315
  18. NEXIUM [Concomitant]
     Active Substance: ESOMEPRAZOLE MAGNESIUM
     Dosage: 40 MG, 1X/DAY
  19. LYRICA [Suspect]
     Active Substance: PREGABALIN
     Indication: BACK PAIN
     Dosage: 75 MG, 1X/DAY
     Dates: start: 20150311, end: 20150313
  20. LABETALOL [Concomitant]
     Active Substance: LABETALOL\LABETALOL HYDROCHLORIDE
     Dosage: 50 MG, 2X/DAY
  21. LACTULOSE. [Concomitant]
     Active Substance: LACTULOSE
     Indication: CONSTIPATION
     Dosage: 30 ML, 3X/DAY

REACTIONS (17)
  - Gait disturbance [Recovered/Resolved]
  - Pain [Unknown]
  - Musculoskeletal discomfort [Unknown]
  - Muscle disorder [Unknown]
  - Loss of consciousness [Unknown]
  - Acute kidney injury [Not Recovered/Not Resolved]
  - Myalgia [Unknown]
  - Neck pain [Unknown]
  - Hypoaesthesia [Unknown]
  - Dysaesthesia [Unknown]
  - Activities of daily living impaired [Recovered/Resolved]
  - Chronic kidney disease [Unknown]
  - Rhabdomyolysis [Recovered/Resolved]
  - Malaise [Recovered/Resolved]
  - Muscular weakness [Unknown]
  - Musculoskeletal stiffness [Unknown]
  - Drug ineffective [Not Recovered/Not Resolved]

NARRATIVE: CASE EVENT DATE: 20150312
